FAERS Safety Report 5841153-8 (Version None)
Quarter: 2008Q3

REPORT INFORMATION
  Report Type: 
  Country: None (occurrence: None)
  Receive Date: 20080807
  Receipt Date: 20080807
  Transmission Date: 20090109
  Serious: Yes (Death)
  Sender: FDA-Public Use
  Company Number: None

PATIENT
  Age: 57 Year
  Sex: Male
  Weight: 76.6579 kg

DRUGS (2)
  1. COMBIVIR [Suspect]
     Dosage: PO
     Route: 048
  2. KALETRA [Suspect]
     Dosage: PO
     Route: 048

REACTIONS (2)
  - IMPAIRED WORK ABILITY [None]
  - RASH [None]
